FAERS Safety Report 5376446-4 (Version None)
Quarter: 2007Q3

REPORT INFORMATION
  Report Type: 
  Country: None (occurrence: None)
  Receive Date: 20070702
  Receipt Date: 20070622
  Transmission Date: 20080115
  Serious: Yes (Hospitalization, Other)
  Sender: FDA-Public Use
  Company Number: DE-PFIZER INC-2007052189

PATIENT
  Age: 52 Year
  Sex: Male

DRUGS (3)
  1. LYRICA [Suspect]
     Indication: GENERALISED ANXIETY DISORDER
     Dosage: DAILY DOSE:300MG
     Route: 048
     Dates: start: 20070413, end: 20070423
  2. MIRTAZAPINE [Interacting]
     Indication: GENERALISED ANXIETY DISORDER
     Dosage: DAILY DOSE:60MG
     Route: 048
  3. DIAZEPAM [Concomitant]
     Route: 048
     Dates: start: 20070328, end: 20070417

REACTIONS (2)
  - DRUG INTERACTION [None]
  - RHABDOMYOLYSIS [None]
